FAERS Safety Report 11872470 (Version 2)
Quarter: 2016Q3

REPORT INFORMATION
  Report Type: Spontaneous
  Country: US (occurrence: US)
  Receive Date: 20151228
  Receipt Date: 20160921
  Transmission Date: 20161109
  Serious: No
  Sender: FDA-Public Use
  Company Number: US-IMPAX LABORATORIES, INC-2015-IPXL-01170

PATIENT
  Age: 65 Year
  Sex: Female
  Weight: 59 kg

DRUGS (5)
  1. DEXEDRINE SPANSULE [Suspect]
     Active Substance: DEXTROAMPHETAMINE SULFATE
     Dosage: 15 MG, 2 CAPSULES 2 TIMES A DAY
     Route: 048
     Dates: start: 20151107, end: 20151109
  2. DEXEDRINE SPANSULE [Suspect]
     Active Substance: DEXTROAMPHETAMINE SULFATE
     Dosage: 15 MG 1 CAPSULE IN MORNING AND 1 CAPSULE IN EVENING
     Route: 048
     Dates: start: 20151110
  3. HALCION [Concomitant]
     Active Substance: TRIAZOLAM
     Indication: SLEEP DISORDER
     Dosage: UNK,   DOSE SKIPPED ON 09 NOV 2015
     Route: 065
     Dates: start: 2006
  4. LEVOTHYROXINE. [Concomitant]
     Active Substance: LEVOTHYROXINE
     Indication: HYPOTHYROIDISM
     Dosage: SINCE MANY YEARS
     Route: 065
  5. REVLIMID [Concomitant]
     Active Substance: LENALIDOMIDE
     Indication: CYTOGENETIC ABNORMALITY
     Dosage: UNK
     Route: 065
     Dates: start: 2015

REACTIONS (5)
  - Swollen tongue [Recovered/Resolved]
  - Lethargy [Recovered/Resolved]
  - Oropharyngeal pain [Recovered/Resolved]
  - Nausea [Recovered/Resolved]
  - Malaise [Recovered/Resolved]

NARRATIVE: CASE EVENT DATE: 20151109
